FAERS Safety Report 8379817-7 (Version None)
Quarter: 2012Q2

REPORT INFORMATION
  Report Type: 
  Country: None (occurrence: None)
  Receive Date: 20120523
  Receipt Date: 20120510
  Transmission Date: 20120825
  Serious: Yes (Other)
  Sender: FDA-Public Use
  Company Number: JP-UCBSA-057420

PATIENT

DRUGS (1)
  1. XYZAL [Suspect]
     Route: 048

REACTIONS (2)
  - GOUT [None]
  - PAIN IN EXTREMITY [None]
